FAERS Safety Report 5724658-X (Version None)
Quarter: 2008Q2

REPORT INFORMATION
  Report Type: 
  Country: None (occurrence: None)
  Receive Date: 20080428
  Receipt Date: 20080411
  Transmission Date: 20081010
  Serious: Yes (Hospitalization)
  Sender: FDA-Public Use
  Company Number: PAR_02184_2008

PATIENT
  Sex: Female

DRUGS (5)
  1. IBUPROFEN [Suspect]
     Indication: SUICIDE ATTEMPT
     Dosage: (1000 MG ORAL)
     Route: 048
     Dates: start: 20060508, end: 20060508
  2. APRANAX /00256202/ (APRANAX - NAPROXEN SODIUM) (NOT SPECIFIED) [Suspect]
     Indication: SUICIDE ATTEMPT
     Dosage: (10 DF ORAL)
     Route: 048
     Dates: start: 20060508, end: 20060508
  3. ACETAMINOPHEN [Suspect]
     Indication: SUICIDE ATTEMPT
     Dosage: (5000 MG ORAL)
     Route: 048
     Dates: start: 20060508, end: 20060508
  4. VALIUM [Suspect]
     Indication: SUICIDE ATTEMPT
     Dosage: (10 DF ORAL)
     Route: 048
     Dates: start: 20060508, end: 20060508
  5. ETHANOL (ETHANOL) [Suspect]
     Indication: SUICIDE ATTEMPT
     Dosage: (DF ORAL)
     Route: 048
     Dates: start: 20060508, end: 20060508

REACTIONS (6)
  - ALCOHOL POISONING [None]
  - CYTOLYTIC HEPATITIS [None]
  - DRUG TOXICITY [None]
  - LABORATORY TEST ABNORMAL [None]
  - PROTHROMBIN TIME ABNORMAL [None]
  - SUICIDE ATTEMPT [None]
